FAERS Safety Report 10934665 (Version 2)
Quarter: 2015Q2

REPORT INFORMATION
  Report Type: Spontaneous
  Country: SK (occurrence: SK)
  Receive Date: 20150320
  Receipt Date: 20150413
  Transmission Date: 20150821
  Serious: Yes (Other)
  Sender: FDA-Public Use
  Company Number: SK-ELI_LILLY_AND_COMPANY-SK201503004320

PATIENT
  Age: 67 Year
  Sex: Female

DRUGS (10)
  1. FOLIC ACID. [Concomitant]
     Active Substance: FOLIC ACID
  2. ALIMTA [Suspect]
     Active Substance: PEMETREXED DISODIUM
     Dosage: 500 MG, CYCLICAL
     Route: 042
     Dates: start: 20150216
  3. SORBIMON [Concomitant]
     Dosage: UNK, UNKNOWN
     Route: 065
  4. ALIMTA [Suspect]
     Active Substance: PEMETREXED DISODIUM
     Indication: NON-SMALL CELL LUNG CANCER
     Dosage: 800 MG, CYCLICAL
     Route: 042
     Dates: start: 20150121
  5. VITAMIN B12 [Concomitant]
     Active Substance: CYANOCOBALAMIN
  6. ALIMTA [Suspect]
     Active Substance: PEMETREXED DISODIUM
     Dosage: 100 MG, CYCLICAL
     Route: 042
     Dates: start: 20150216
  7. FURON                              /00032601/ [Concomitant]
     Active Substance: FUROSEMIDE
     Dosage: UNK, UNKNOWN
     Route: 065
  8. ATENOBENE [Concomitant]
     Dosage: UNK, UNKNOWN
     Route: 065
  9. ONBREZ [Concomitant]
     Active Substance: INDACATEROL
     Dosage: UNK, UNKNOWN
     Route: 065
  10. ALPHA D3 [Concomitant]
     Dosage: UNK, UNKNOWN
     Route: 065

REACTIONS (3)
  - Platelet count decreased [Unknown]
  - Skin hyperpigmentation [Not Recovered/Not Resolved]
  - Rash [Recovered/Resolved]

NARRATIVE: CASE EVENT DATE: 201501
